FAERS Safety Report 23219062 (Version 2)
Quarter: 2023Q4

REPORT INFORMATION
  Report Type: Spontaneous
  Country: AU (occurrence: AU)
  Receive Date: 20231122
  Receipt Date: 20231130
  Transmission Date: 20240110
  Serious: Yes (Hospitalization, Other)
  Sender: FDA-Public Use
  Company Number: AU-VERTEX PHARMACEUTICALS-2023-005177

PATIENT
  Sex: Female
  Weight: 60 kg

DRUGS (4)
  1. TRIKAFTA [Suspect]
     Active Substance: ELEXACAFTOR\IVACAFTOR\TEZACAFTOR
     Indication: Cystic fibrosis
     Dosage: MORNING, EVENING
     Route: 048
     Dates: start: 20220922, end: 20230304
  2. AZITHROMYCIN [Concomitant]
     Active Substance: AZITHROMYCIN
     Dosage: UNK
  3. SODIUM CHLORIDE [Concomitant]
     Active Substance: SODIUM CHLORIDE
     Dosage: UNK
  4. TOBI PODHALER [Concomitant]
     Active Substance: TOBRAMYCIN
     Dosage: UNK

REACTIONS (5)
  - Lower respiratory tract infection [Recovered/Resolved]
  - Postpartum haemorrhage [Recovered/Resolved]
  - Uterine atony [Recovered/Resolved]
  - Anaemia of pregnancy [Unknown]
  - Exposure during pregnancy [Unknown]

NARRATIVE: CASE EVENT DATE: 20230101
